FAERS Safety Report 11260490 (Version 2)
Quarter: 2015Q3

REPORT INFORMATION
  Report Type: Report from Study
  Country: JP (occurrence: JP)
  Receive Date: 20150710
  Receipt Date: 20150820
  Transmission Date: 20151125
  Serious: Yes (Death, Hospitalization)
  Sender: FDA-Public Use
  Company Number: JP-EISAI MEDICAL RESEARCH-EC-2015-008417

PATIENT
  Age: 81 Year
  Sex: Female
  Weight: 30 kg

DRUGS (3)
  1. LEVOTHYROXINE SODIUM HYDRATE [Concomitant]
  2. LENVIMA [Suspect]
     Active Substance: LENVATINIB
     Route: 048
     Dates: start: 20150703, end: 20150707
  3. LENVIMA [Suspect]
     Active Substance: LENVATINIB
     Indication: FOLLICULAR THYROID CANCER
     Route: 048
     Dates: start: 20150609, end: 20150702

REACTIONS (3)
  - Stomatitis [Recovered/Resolved]
  - Dehydration [Not Recovered/Not Resolved]
  - Malignant neoplasm progression [Fatal]

NARRATIVE: CASE EVENT DATE: 20150702
